FAERS Safety Report 8479167-4 (Version None)
Quarter: 2012Q2

REPORT INFORMATION
  Report Type: 
  Country: None (occurrence: None)
  Receive Date: 20120629
  Receipt Date: 20120620
  Transmission Date: 20120825
  Serious: Yes (Other)
  Sender: FDA-Public Use
  Company Number: JP-BAYER-2012-061609

PATIENT
  Age: 70 Year
  Sex: Male

DRUGS (4)
  1. LOXOPROFEN SODIUM [Suspect]
     Indication: ANALGESIC THERAPY
     Dosage: UNK
     Route: 048
     Dates: start: 20110101
  2. AMOXICILLIN [Suspect]
     Indication: ENDOCARDITIS PROPHYLAXIS
     Dosage: UNK
     Route: 048
     Dates: start: 20111101
  3. WARFARIN POTASSIUM [Suspect]
     Dosage: UNK
     Route: 048
     Dates: start: 19951001
  4. ASPIRIN [Suspect]
     Dosage: UNK
     Route: 048
     Dates: start: 19951001, end: 20110101

REACTIONS (1)
  - POST PROCEDURAL HAEMORRHAGE [None]
